FAERS Safety Report 5325385-3 (Version None)
Quarter: 2007Q2

REPORT INFORMATION
  Report Type: 
  Country: None (occurrence: None)
  Receive Date: 20070515
  Receipt Date: 20070507
  Transmission Date: 20071010
  Serious: Yes (Hospitalization, Other)
  Sender: FDA-Public Use
  Company Number: US-ELI_LILLY_AND_COMPANY-US200703001862

PATIENT
  Age: 73 Year
  Sex: Female

DRUGS (13)
  1. BENADRYL [Concomitant]
     Dosage: 25 D/F, UNK
  2. ZOCOR [Concomitant]
     Dosage: 40 D/F, DAILY (1/D)
  3. COUMADIN [Concomitant]
     Dosage: 5 D/F, UNK
  4. MULTI-VITAMIN [Concomitant]
  5. ASCORBIC ACID [Concomitant]
  6. CALCIUM AND ERGOCALCIFEROL [Concomitant]
     Dosage: UNK, 2/D
  7. FORTEO [Suspect]
     Indication: OSTEOPOROSIS
     Dosage: 20 UG, DAILY (1/D)
     Dates: start: 20070306, end: 20070313
  8. FORTEO [Suspect]
     Dosage: 20 UG, DAILY (1/D)
     Dates: start: 20070101
  9. VASOTEC [Concomitant]
     Indication: BLOOD PRESSURE
     Dosage: 20 D/F, DAILY (1/D)
  10. METOPROLOL SUCCINATE [Concomitant]
     Indication: BLOOD PRESSURE
     Dosage: 100 D/F, 2/D
  11. NORVASC [Concomitant]
     Indication: BLOOD PRESSURE
     Dosage: 5 D/F, UNK
  12. HYDROCHLOROTHIAZIDE [Concomitant]
     Indication: BLOOD PRESSURE
     Dosage: 25 D/F, DAILY (1/D)
     Dates: end: 20070301
  13. HYDROCHLOROTHIAZIDE [Concomitant]
     Dosage: 25 D/F, DAILY (1/D)
     Dates: start: 20070301

REACTIONS (6)
  - BLOOD POTASSIUM DECREASED [None]
  - CHEST DISCOMFORT [None]
  - DYSPNOEA [None]
  - FLUSHING [None]
  - HEART RATE INCREASED [None]
  - PULMONARY OEDEMA [None]
